FAERS Safety Report 11092883 (Version 2)
Quarter: 2015Q2

REPORT INFORMATION
  Report Type: Report from Study
  Country: PT (occurrence: PT)
  Receive Date: 20150506
  Receipt Date: 20150512
  Transmission Date: 20150821
  Serious: Yes (Other)
  Sender: FDA-Public Use
  Company Number: PT-EMD SERONO-8023503

PATIENT
  Sex: Female

DRUGS (2)
  1. PARACETAMOL [Concomitant]
     Active Substance: ACETAMINOPHEN
     Indication: PRODUCT USED FOR UNKNOWN INDICATION
     Route: 048
  2. REBIF [Suspect]
     Active Substance: INTERFERON BETA-1A
     Indication: MULTIPLE SCLEROSIS
     Route: 058
     Dates: start: 20101115

REACTIONS (2)
  - Abortion spontaneous [Recovered/Resolved]
  - Maternal exposure during pregnancy [Recovered/Resolved]

NARRATIVE: CASE EVENT DATE: 2014
